FAERS Safety Report 17779067 (Version 2)
Quarter: 2020Q2

REPORT INFORMATION
  Report Type: Report from Study
  Country: US (occurrence: US)
  Receive Date: 20200513
  Receipt Date: 20200617
  Transmission Date: 20200714
  Serious: Yes (Death, Hospitalization, Other)
  Sender: FDA-Public Use
  Company Number: NVSC2020US128727

PATIENT
  Age: 75 Year
  Sex: Male
  Weight: 81.63 kg

DRUGS (10)
  1. PLAVIX [Concomitant]
     Active Substance: CLOPIDOGREL BISULFATE
     Indication: PRODUCT USED FOR UNKNOWN INDICATION
     Dosage: 75 MG, QD
     Route: 065
     Dates: end: 20200218
  2. VITAMIN D2 [Concomitant]
     Active Substance: ERGOCALCIFEROL
     Indication: PRODUCT USED FOR UNKNOWN INDICATION
     Dosage: 1 DF, BIW (50000 UNIT)
     Route: 065
     Dates: end: 20190506
  3. KLONOPIN [Concomitant]
     Active Substance: CLONAZEPAM
     Indication: PRODUCT USED FOR UNKNOWN INDICATION
     Dosage: UNK UNK, PRN
     Route: 065
  4. ASPIRIN. [Concomitant]
     Active Substance: ASPIRIN
     Indication: PRODUCT USED FOR UNKNOWN INDICATION
     Dosage: 325 MG, QD
     Route: 065
     Dates: end: 20191212
  5. EXELON PATCH [Suspect]
     Active Substance: RIVASTIGMINE
     Indication: PRODUCT USED FOR UNKNOWN INDICATION
     Dosage: 13.3 MG/ 24 HR, APPLY ONE PATCH DAILY
     Route: 062
     Dates: end: 20200203
  6. LIPITOR [Concomitant]
     Active Substance: ATORVASTATIN CALCIUM
     Indication: PRODUCT USED FOR UNKNOWN INDICATION
     Dosage: 40 MG, QD
     Route: 065
     Dates: end: 20191212
  7. NAMENDA [Concomitant]
     Active Substance: MEMANTINE HYDROCHLORIDE
     Indication: PRODUCT USED FOR UNKNOWN INDICATION
     Dosage: UNK
     Route: 065
  8. CLONAZEPAM. [Concomitant]
     Active Substance: CLONAZEPAM
     Indication: PRODUCT USED FOR UNKNOWN INDICATION
     Dosage: 0.5 MG, TID
     Route: 065
     Dates: end: 20190502
  9. INDOCIN [Concomitant]
     Active Substance: INDOMETHACIN
     Indication: HEADACHE
     Dosage: 50 MG, Q12H (PRN)
     Route: 065
     Dates: end: 20200218
  10. MEMANTINE. [Concomitant]
     Active Substance: MEMANTINE
     Indication: PRODUCT USED FOR UNKNOWN INDICATION
     Dosage: 1 DF, BID
     Route: 048
     Dates: end: 20190710

REACTIONS (28)
  - Sinus arrhythmia [Recovering/Resolving]
  - Muscular weakness [Recovering/Resolving]
  - Sinus bradycardia [Recovering/Resolving]
  - Right ventricular systolic pressure increased [Unknown]
  - Tricuspid valve incompetence [Unknown]
  - Death [Fatal]
  - Hypoaesthesia [Recovering/Resolving]
  - Asthenia [Unknown]
  - Atrophy [Unknown]
  - Intervertebral disc degeneration [Unknown]
  - Diastolic dysfunction [Unknown]
  - Atrial enlargement [Unknown]
  - Dysarthria [Unknown]
  - Chest discomfort [Recovering/Resolving]
  - Mitral valve incompetence [Unknown]
  - Syncope [Unknown]
  - Myocardial ischaemia [Recovering/Resolving]
  - Fatigue [Unknown]
  - Tremor [Unknown]
  - Transient ischaemic attack [Recovering/Resolving]
  - Mental status changes [Recovering/Resolving]
  - Gait disturbance [Recovering/Resolving]
  - Vitamin D deficiency [Unknown]
  - Hallucination [Unknown]
  - Memory impairment [Unknown]
  - Hypovitaminosis [Unknown]
  - Dementia [Unknown]
  - Speech disorder [Recovered/Resolved]

NARRATIVE: CASE EVENT DATE: 20191107
